FAERS Safety Report 4647775-4 (Version None)
Quarter: 2005Q2

REPORT INFORMATION
  Report Type: 
  Country: None (occurrence: None)
  Receive Date: 20050426
  Receipt Date: 20050413
  Transmission Date: 20051028
  Serious: Yes (Other)
  Sender: FDA-Public Use
  Company Number: 2004240387BR

PATIENT
  Age: 59 Year
  Sex: Female

DRUGS (1)
  1. BEXTRA [Suspect]
     Indication: MUSCULOSKELETAL PAIN
     Dosage: 40 MG (1 IN 1 D), ORAL
     Route: 048
     Dates: start: 20041001, end: 20050401

REACTIONS (5)
  - DRUG HYPERSENSITIVITY [None]
  - ERYTHEMA [None]
  - MUSCULOSKELETAL PAIN [None]
  - PRURITUS [None]
  - SKIN EXFOLIATION [None]
